FAERS Safety Report 21854047 (Version 2)
Quarter: 2023Q1

REPORT INFORMATION
  Report Type: Spontaneous
  Country: US (occurrence: US)
  Receive Date: 20230112
  Receipt Date: 20230327
  Transmission Date: 20230418
  Serious: Yes (Hospitalization, Other)
  Sender: FDA-Public Use
  Company Number: US-ABBVIE-4267692

PATIENT
  Age: 23 Year
  Sex: Male
  Weight: 59 kg

DRUGS (1)
  1. NORVIR [Suspect]
     Active Substance: RITONAVIR
     Indication: COVID-19
     Dosage: 100 MILLIGRAM
     Route: 048
     Dates: start: 20221231, end: 20230103

REACTIONS (6)
  - Hypoaesthesia [Unknown]
  - Chest discomfort [Not Recovered/Not Resolved]
  - Off label use [Not Recovered/Not Resolved]
  - Confusional state [Not Recovered/Not Resolved]
  - Asthenia [Not Recovered/Not Resolved]
  - Dyspnoea [Not Recovered/Not Resolved]

NARRATIVE: CASE EVENT DATE: 20221231
